FAERS Safety Report 8948448 (Version 2)
Quarter: 2013Q1

REPORT INFORMATION
  Report Type: Spontaneous
  Country: GB (occurrence: None)
  Receive Date: 20121123
  Receipt Date: 20121227
  Transmission Date: 20140127
  Serious: Yes (Other)
  Sender: FDA-Public Use
  Company Number: AUR-APL-2012-04903

PATIENT
  Age: 70 Year
  Sex: Male
  Weight: 105 kg

DRUGS (12)
  1. BISOPROLOL [Suspect]
     Indication: HYPERTENSION
     Dosage: (10 MG, 1 IN 1 D)
  2. DOXAZOSIN [Suspect]
     Indication: HYPERTENSION
     Dosage: (4 MG, 1 IN 1 D)
  3. ACCUPRO [Suspect]
     Indication: HYPERTENSION
     Dosage: (40 MG, 1 IN 1 D)
  4. AMITRIPTYLINE (AMITRIPTYLINE) [Concomitant]
  5. ASPIRIN (ACETYLSALICYLIC ACID) [Concomitant]
  6. DAPSONE (DAPSONE) [Concomitant]
  7. FERROUS GLUCONATE (FERROUS GLUCONATE) [Concomitant]
  8. IBUPROFEN (IBUPROFEN) [Concomitant]
  9. OMEPRAZOLE (OMEPRAZOLE) [Concomitant]
  10. SIMVASTATIN (SIMVASTATIN) [Concomitant]
  11. ALLOPURINOL [Concomitant]
  12. PARACETAMOL (PARACETAMOL) [Concomitant]

REACTIONS (2)
  - Palpitations [None]
  - Blood pressure inadequately controlled [None]
